FAERS Safety Report 9621136 (Version 1)
Quarter: 2013Q4

REPORT INFORMATION
  Report Type: Spontaneous
  Country: ES (occurrence: ES)
  Receive Date: 20131015
  Receipt Date: 20131015
  Transmission Date: 20140711
  Serious: Yes (Other)
  Sender: FDA-Public Use
  Company Number: ES-UCBSA-100059

PATIENT
  Sex: Male

DRUGS (8)
  1. CIMZIA [Suspect]
     Indication: GOUTY ARTHRITIS
     Dosage: DOSE: 200 MG
     Route: 058
     Dates: start: 201303
  2. PREDNISONE [Concomitant]
     Indication: GOUTY ARTHRITIS
     Dates: start: 201201
  3. ALOPURINOL [Concomitant]
     Indication: GOUTY ARTHRITIS
     Dates: start: 201003
  4. METOTREXATE [Concomitant]
     Indication: GOUTY ARTHRITIS
     Dates: start: 201306, end: 201309
  5. COLCHICINE [Concomitant]
     Indication: GOUTY ARTHRITIS
     Dates: start: 2008
  6. ENANTYUM [Concomitant]
     Indication: GOUTY ARTHRITIS
     Dates: start: 201303
  7. GABAPENTINE [Concomitant]
     Indication: GOUTY ARTHRITIS
     Dates: start: 201305
  8. TAGIN [Concomitant]
     Indication: GOUTY ARTHRITIS
     Dates: start: 201306

REACTIONS (1)
  - Cytomegalovirus infection [Unknown]
